FAERS Safety Report 17302578 (Version 1)
Quarter: 2020Q1

REPORT INFORMATION
  Report Type: Spontaneous
  Country: FR (occurrence: FR)
  Receive Date: 20200122
  Receipt Date: 20200122
  Transmission Date: 20200409
  Serious: Yes (Other)
  Sender: FDA-Public Use
  Company Number: FR-MYLANLABS-2020M1006250

PATIENT
  Age: 62 Year
  Sex: Male
  Weight: 65 kg

DRUGS (3)
  1. DOXYCYCLINE. [Suspect]
     Active Substance: DOXYCYCLINE
     Indication: Q FEVER
     Dosage: 200 MILLIGRAM, QD
     Route: 048
     Dates: start: 201811
  2. SILODYX [Suspect]
     Active Substance: SILODOSIN
     Indication: PROSTATIC ADENOMA
     Dosage: UNK
     Route: 048
     Dates: start: 201908
  3. PLAQUENIL [Suspect]
     Active Substance: HYDROXYCHLOROQUINE SULFATE
     Indication: Q FEVER
     Dosage: 600 MILLIGRAM, QD
     Route: 048
     Dates: start: 201811

REACTIONS (1)
  - Acute kidney injury [Not Recovered/Not Resolved]

NARRATIVE: CASE EVENT DATE: 201908
